FAERS Safety Report 22135333 (Version 8)
Quarter: 2023Q2

REPORT INFORMATION
  Report Type: Spontaneous
  Country: US (occurrence: US)
  Receive Date: 20230324
  Receipt Date: 20230616
  Transmission Date: 20230721
  Serious: Yes (Hospitalization, Other)
  Sender: FDA-Public Use
  Company Number: US-SA-2023SA092411

PATIENT
  Age: 15 Year
  Sex: Male

DRUGS (10)
  1. ALPROLIX [Suspect]
     Active Substance: EFTRENONACOG ALFA
     Dosage: INFUSE 2250 UNITS (MAY USE A DOSE OF 2215 EVERY 24 HOURS ON DAYS 3 THROUGH 6, THEN EVERY 48 HOURS ON
     Route: 042
  2. ALPROLIX [Suspect]
     Active Substance: EFTRENONACOG ALFA
     Dosage: INFUSE 2250 UNITS (MAY USE A DOSE OF 2215 EVERY 24 HOURS ON DAYS 3 THROUGH 6, THEN EVERY 48 HOURS ON
     Route: 042
  3. ALPROLIX [Suspect]
     Active Substance: EFTRENONACOG ALFA
     Dosage: 2500 UNITS ( +/- 10 % ), QD
     Route: 042
  4. ALPROLIX [Suspect]
     Active Substance: EFTRENONACOG ALFA
     Dosage: 2500 UNITS ( +/- 10 % ), QD
     Route: 042
  5. ALPROLIX [Suspect]
     Active Substance: EFTRENONACOG ALFA
     Dosage: 2250 U, QOD
     Route: 042
  6. ALPROLIX [Suspect]
     Active Substance: EFTRENONACOG ALFA
     Dosage: 2250 U, QOD
     Route: 042
  7. ALPROLIX [Suspect]
     Active Substance: EFTRENONACOG ALFA
     Dosage: 2250 U, QD
     Route: 042
     Dates: start: 20230402
  8. ALPROLIX [Suspect]
     Active Substance: EFTRENONACOG ALFA
     Dosage: 2250 U, QD
     Route: 042
     Dates: start: 20230402
  9. ALPROLIX [Suspect]
     Active Substance: EFTRENONACOG ALFA
     Dosage: 2395    UNK
     Route: 065
  10. ALPROLIX [Suspect]
     Active Substance: EFTRENONACOG ALFA
     Dosage: 2395    UNK
     Route: 065

REACTIONS (10)
  - Haemorrhage [Unknown]
  - Procedural pain [Recovering/Resolving]
  - Vomiting [Recovering/Resolving]
  - Nausea [Recovering/Resolving]
  - Synovectomy [Unknown]
  - Joint swelling [Recovering/Resolving]
  - Joint warmth [Not Recovered/Not Resolved]
  - Weight decreased [Unknown]
  - Joint range of motion decreased [Unknown]
  - Musculoskeletal discomfort [Not Recovered/Not Resolved]

NARRATIVE: CASE EVENT DATE: 20230101
